FAERS Safety Report 5410577-5 (Version None)
Quarter: 2007Q3

REPORT INFORMATION
  Report Type: 
  Country: None (occurrence: None)
  Receive Date: 20070810
  Receipt Date: 20070323
  Transmission Date: 20080115
  Serious: No
  Sender: FDA-Public Use
  Company Number: A0644351A

PATIENT
  Age: 47 Year
  Sex: Male

DRUGS (4)
  1. PAROXETINE [Suspect]
     Indication: DEPRESSION
     Route: 048
     Dates: start: 20030101
  2. XANAX [Concomitant]
  3. AMITRIPTYLINE HCL [Concomitant]
  4. LORA TAB [Concomitant]

REACTIONS (5)
  - INITIAL INSOMNIA [None]
  - INSOMNIA [None]
  - THERAPEUTIC RESPONSE UNEXPECTED [None]
  - WEIGHT INCREASED [None]
  - WEIGHT LOSS POOR [None]
